FAERS Safety Report 4896576-0 (Version None)
Quarter: 2005Q4

REPORT INFORMATION
  Report Type: 
  Country: None (occurrence: None)
  Receive Date: 20051221
  Receipt Date: 20050920
  Transmission Date: 20060501
  Serious: No
  Sender: FDA-Public Use
  Company Number: US140783

PATIENT
  Age: 64 Year
  Sex: Female
  Weight: 97.5 kg

DRUGS (9)
  1. SENSIPAR [Suspect]
     Indication: RENAL FAILURE CHRONIC
     Dosage: 30 MG, 1 IN 1 DAYS, PO
     Route: 048
     Dates: start: 20050301, end: 20050601
  2. PARICALCITOL [Concomitant]
  3. PHOSLO [Concomitant]
  4. WARFARIN SODIUM [Concomitant]
  5. CYCLOBENZAPRINE HCL [Concomitant]
  6. CALCITRIOL [Concomitant]
  7. HEMATINIC [Concomitant]
  8. BUMETANIDE [Concomitant]
  9. DIATX [Concomitant]

REACTIONS (2)
  - HYPOCALCAEMIA [None]
  - MYALGIA [None]
